FAERS Safety Report 9746426 (Version 1)
Quarter: 2013Q4

REPORT INFORMATION
  Report Type: Spontaneous
  Country: US (occurrence: None)
  Receive Date: 20131209
  Receipt Date: 20131209
  Transmission Date: 20140711
  Serious: Yes (Disabling)
  Sender: FDA-Public Use
  Company Number: None

PATIENT
  Age: 35 Year
  Sex: Female
  Weight: 51.71 kg

DRUGS (1)
  1. BOTOX [Suspect]
     Indication: MIGRAINE
     Route: 030

REACTIONS (8)
  - Headache [None]
  - Neck pain [None]
  - Asthenia [None]
  - Blood pressure increased [None]
  - Dysphagia [None]
  - Movement disorder [None]
  - Pain [None]
  - Oesophageal disorder [None]
